FAERS Safety Report 16403944 (Version 9)
Quarter: 2020Q1

REPORT INFORMATION
  Report Type: Report from Study
  Country: US (occurrence: US)
  Receive Date: 20190607
  Receipt Date: 20200226
  Transmission Date: 20200409
  Serious: Yes (Hospitalization)
  Sender: FDA-Public Use
  Company Number: PHEH2019US023357

PATIENT
  Age: 52 Year
  Sex: Female

DRUGS (5)
  1. TREPROSTINIL. [Suspect]
     Active Substance: TREPROSTINIL
     Dosage: 28 NG/KG/MIN, CONTINUOUS
     Route: 042
     Dates: start: 20190614
  2. TREPROSTINIL. [Suspect]
     Active Substance: TREPROSTINIL
     Indication: PULMONARY ARTERIAL HYPERTENSION
     Dosage: 22 NG/KG/MIN, CONTINUOUS
     Route: 042
     Dates: start: 20190529
  3. TREPROSTINIL. [Suspect]
     Active Substance: TREPROSTINIL
     Dosage: 40 NG/KG/MIN, CONTINUOUS (10 MG/ML)
     Route: 042
     Dates: start: 20190615
  4. LETAIRIS [Suspect]
     Active Substance: AMBRISENTAN
     Indication: PRODUCT USED FOR UNKNOWN INDICATION
     Route: 065
  5. TREPROSTINIL. [Suspect]
     Active Substance: TREPROSTINIL
     Dosage: 47 NG/KG/MIN, CONTINUOUS
     Route: 042
     Dates: start: 20190615

REACTIONS (16)
  - Dyspnoea [Unknown]
  - Dysgeusia [Unknown]
  - Weight increased [Unknown]
  - Gait disturbance [Unknown]
  - Pain in jaw [Unknown]
  - Nausea [Unknown]
  - Condition aggravated [Unknown]
  - Oedema [Unknown]
  - Fatigue [Unknown]
  - Pain in extremity [Unknown]
  - Oxygen consumption increased [Unknown]
  - Pulmonary hypertension [Unknown]
  - Headache [Unknown]
  - Diarrhoea [Unknown]
  - Fluid retention [Not Recovered/Not Resolved]
  - Swelling [Unknown]

NARRATIVE: CASE EVENT DATE: 201910
